FAERS Safety Report 9661277 (Version 1)
Quarter: 2013Q4

REPORT INFORMATION
  Report Type: Spontaneous
  Country: IN (occurrence: IN)
  Receive Date: 20131031
  Receipt Date: 20131031
  Transmission Date: 20140711
  Serious: Yes (Other)
  Sender: FDA-Public Use
  Company Number: IN-MYLANLABS-2013S1023891

PATIENT
  Age: 21 Year
  Sex: Male

DRUGS (2)
  1. FLUVOXAMINE [Suspect]
     Indication: OBSESSIVE-COMPULSIVE DISORDER
     Dosage: INITIALLY 50MG IN MORNING, INCREASING BY 50MG EVERY 4TH DAY
     Route: 065
  2. FLUVOXAMINE [Suspect]
     Indication: OBSESSIVE-COMPULSIVE DISORDER
     Dosage: 150MG, TO BE INCREASED EVERY 8 DAYS
     Route: 065

REACTIONS (2)
  - Oculogyric crisis [Recovered/Resolved]
  - Mania [Recovering/Resolving]
